FAERS Safety Report 17755611 (Version 2)
Quarter: 2020Q2

REPORT INFORMATION
  Report Type: Spontaneous
  Country: US (occurrence: US)
  Receive Date: 20200507
  Receipt Date: 20200521
  Transmission Date: 20200714
  Serious: No
  Sender: FDA-Public Use
  Company Number: US-PFIZER INC-2020182695

PATIENT
  Sex: Male

DRUGS (2)
  1. VIAGRA [Suspect]
     Active Substance: SILDENAFIL CITRATE
     Dosage: 400 MG
  2. MOTRIN [Suspect]
     Active Substance: IBUPROFEN
     Dosage: 800 MG

REACTIONS (1)
  - Intentional overdose [Unknown]
